FAERS Safety Report 10112255 (Version 1)
Quarter: 2014Q2

REPORT INFORMATION
  Report Type: Spontaneous
  Country: US (occurrence: US)
  Receive Date: 20140425
  Receipt Date: 20140425
  Transmission Date: 20141212
  Serious: No
  Sender: FDA-Public Use
  Company Number: US-009507513-1404USA006739

PATIENT
  Sex: Female
  Weight: 42.63 kg

DRUGS (1)
  1. IMPLANON [Suspect]
     Indication: CONTRACEPTION
     Dosage: 68 MG, ONE ROD, EVERY THREE YEARS
     Route: 059

REACTIONS (3)
  - Device dislocation [Unknown]
  - Device difficult to use [Unknown]
  - Medical device complication [Unknown]
